FAERS Safety Report 8050801-6 (Version None)
Quarter: 2012Q1

REPORT INFORMATION
  Report Type: 
  Country: None (occurrence: None)
  Receive Date: 20120117
  Receipt Date: 20120104
  Transmission Date: 20120608
  Serious: Yes (Death, Hospitalization)
  Sender: FDA-Public Use
  Company Number: US-MUTUAL PHARMACEUTICAL COMPANY, INC.-CLHC20120002

PATIENT
  Age: 20 Year
  Sex: Male

DRUGS (3)
  1. COLCHICINE [Suspect]
     Route: 048
  2. COCAINE [Suspect]
     Route: 065
     Dates: end: 20100101
  3. THC [Suspect]
     Route: 065
     Dates: end: 20100101

REACTIONS (26)
  - BLOOD PRESSURE DECREASED [None]
  - BLOOD PH DECREASED [None]
  - VOMITING [None]
  - DIARRHOEA HAEMORRHAGIC [None]
  - HAEMOGLOBIN INCREASED [None]
  - BLOOD UREA INCREASED [None]
  - AMYLASE INCREASED [None]
  - BLOOD CREATINE PHOSPHOKINASE INCREASED [None]
  - PCO2 DECREASED [None]
  - HEART RATE INCREASED [None]
  - PROTEIN TOTAL DECREASED [None]
  - PO2 DECREASED [None]
  - BLOOD CREATININE INCREASED [None]
  - PROTHROMBIN TIME PROLONGED [None]
  - NAUSEA [None]
  - BLOOD BICARBONATE DECREASED [None]
  - INTERNATIONAL NORMALISED RATIO INCREASED [None]
  - ACTIVATED PARTIAL THROMBOPLASTIN TIME PROLONGED [None]
  - ABDOMINAL PAIN [None]
  - COMPLETED SUICIDE [None]
  - URINE OUTPUT DECREASED [None]
  - OXYGEN SATURATION DECREASED [None]
  - WHITE BLOOD CELL COUNT INCREASED [None]
  - HAEMORRHAGE [None]
  - ASPARTATE AMINOTRANSFERASE INCREASED [None]
  - ALANINE AMINOTRANSFERASE INCREASED [None]
